FAERS Safety Report 14718495 (Version 3)
Quarter: 2019Q1

REPORT INFORMATION
  Report Type: Report from Study
  Country: JP (occurrence: JP)
  Receive Date: 20180404
  Receipt Date: 20190129
  Transmission Date: 20190417
  Serious: Yes (Other)
  Sender: FDA-Public Use
  Company Number: JP-TAKEDA-2018TJP008767

PATIENT

DRUGS (1)
  1. ALOGLIPTIN. [Suspect]
     Active Substance: ALOGLIPTIN
     Indication: TYPE 2 DIABETES MELLITUS
     Dosage: UNK
     Route: 048

REACTIONS (4)
  - Infection [Unknown]
  - Hepatic function abnormal [Unknown]
  - Neoplasm malignant [Unknown]
  - Jaundice [Unknown]
